FAERS Safety Report 9665858 (Version 1)
Quarter: 2013Q4

REPORT INFORMATION
  Report Type: Spontaneous
  Country: JP (occurrence: JP)
  Receive Date: 20131104
  Receipt Date: 20131104
  Transmission Date: 20140711
  Serious: Yes (Other)
  Sender: FDA-Public Use
  Company Number: PHHY2013JP120846

PATIENT
  Age: 80 Year
  Sex: Male

DRUGS (3)
  1. ZOLEDRONATE [Suspect]
     Indication: PLASMA CELL MYELOMA
  2. PREDNISOLONE [Suspect]
     Indication: PLASMA CELL MYELOMA
  3. MELPHALAN [Suspect]
     Indication: PLASMA CELL MYELOMA

REACTIONS (4)
  - Osteonecrosis of jaw [Recovered/Resolved]
  - Pain in jaw [Recovered/Resolved]
  - Dental discomfort [Recovered/Resolved]
  - Abscess jaw [Recovered/Resolved]
